FAERS Safety Report 13023276 (Version 1)
Quarter: 2016Q4

REPORT INFORMATION
  Report Type: Spontaneous
  Country: US (occurrence: US)
  Receive Date: 20161213
  Receipt Date: 20161213
  Transmission Date: 20170207
  Serious: No
  Sender: FDA-Public Use
  Company Number: US-BEH-2016075990

PATIENT
  Sex: Female

DRUGS (1)
  1. HIZENTRA [Suspect]
     Active Substance: HUMAN IMMUNOGLOBULIN G
     Indication: HUMORAL IMMUNE DEFECT
     Dosage: 11 G, 55 ML, QW
     Route: 058
     Dates: start: 20161025

REACTIONS (4)
  - Nausea [Unknown]
  - Feeling of body temperature change [Unknown]
  - Infusion site vesicles [Recovered/Resolved]
  - Infusion site pain [Recovered/Resolved]
